FAERS Safety Report 19391060 (Version 1)
Quarter: 2021Q2

REPORT INFORMATION
  Report Type: Spontaneous
  Country: FR (occurrence: FR)
  Receive Date: 20210608
  Receipt Date: 20210608
  Transmission Date: 20210717
  Serious: Yes (Other)
  Sender: FDA-Public Use
  Company Number: FR-PFIZER INC-2021632111

PATIENT
  Age: 52 Year
  Sex: Female
  Weight: 50 kg

DRUGS (6)
  1. COMIRNATY [Suspect]
     Active Substance: TOZINAMERAN
     Indication: COVID-19 IMMUNISATION
     Dosage: 1ST DOSE, SINGLE DOSE
     Route: 030
     Dates: start: 20210406, end: 20210406
  2. HYDROXYZINE [Concomitant]
     Active Substance: HYDROXYZINE HYDROCHLORIDE
     Dosage: UNK
  3. XANAX [Suspect]
     Active Substance: ALPRAZOLAM
     Indication: ANXIETY
     Dosage: 1.5 MG, DAILY
     Route: 048
     Dates: start: 2011, end: 20210414
  4. LIBRAX [Suspect]
     Active Substance: CHLORDIAZEPOXIDE HYDROCHLORIDE\CLIDINIUM BROMIDE
     Indication: ANXIETY
     Dosage: 4 DF, DAILY
     Route: 048
     Dates: start: 20210414
  5. BACLOFEN. [Concomitant]
     Active Substance: BACLOFEN
     Dosage: UNK
  6. DULOXETINE. [Concomitant]
     Active Substance: DULOXETINE
     Dosage: UNK

REACTIONS (16)
  - Vaccination site pain [Unknown]
  - Dry mouth [Not Recovered/Not Resolved]
  - Suicidal ideation [Recovered/Resolved]
  - Alcoholism [Recovered/Resolved]
  - Dizziness [Recovered/Resolved]
  - Nausea [Unknown]
  - Abdominal pain [Recovered/Resolved]
  - Behaviour disorder [Recovered/Resolved]
  - Arthralgia [Unknown]
  - Myalgia [Recovered/Resolved]
  - Chills [Unknown]
  - Muscular weakness [Not Recovered/Not Resolved]
  - Dissociative disorder [Unknown]
  - Aggression [Recovered/Resolved]
  - Headache [Unknown]
  - Affective disorder [Recovering/Resolving]

NARRATIVE: CASE EVENT DATE: 20210406
